FAERS Safety Report 11780269 (Version 1)
Quarter: 2015Q4

REPORT INFORMATION
  Report Type: Spontaneous
  Country: US (occurrence: US)
  Receive Date: 20151126
  Receipt Date: 20151126
  Transmission Date: 20160305
  Serious: No
  Sender: FDA-Public Use
  Company Number: US-JNJFOC-20150924835

PATIENT
  Age: 67 Year
  Sex: Female
  Weight: 90.72 kg

DRUGS (5)
  1. TYLENOL PM EXTRA STRENGTH [Suspect]
     Active Substance: ACETAMINOPHEN\DIPHENHYDRAMINE HYDROCHLORIDE
     Indication: PAIN
     Dosage: EVERY OTHER NIGHT
     Route: 048
     Dates: start: 20150924, end: 20150925
  2. ADVIL [Concomitant]
     Active Substance: IBUPROFEN
     Indication: SLEEP DISORDER THERAPY
     Route: 065
  3. UNSPECIFIED ANTI-HYPERTENSIVE MEDICATION [Concomitant]
     Indication: HYPERTENSION
     Route: 065
  4. ADVIL [Concomitant]
     Active Substance: IBUPROFEN
     Indication: PAIN
     Route: 065
  5. TYLENOL PM EXTRA STRENGTH [Suspect]
     Active Substance: ACETAMINOPHEN\DIPHENHYDRAMINE HYDROCHLORIDE
     Indication: SLEEP DISORDER THERAPY
     Dosage: EVERY OTHER NIGHT
     Route: 048
     Dates: start: 20150924, end: 20150925

REACTIONS (2)
  - Faeces discoloured [Recovered/Resolved]
  - Product use issue [Unknown]

NARRATIVE: CASE EVENT DATE: 20150924
